FAERS Safety Report 4890665-2 (Version None)
Quarter: 2006Q1

REPORT INFORMATION
  Report Type: 
  Country: None (occurrence: None)
  Receive Date: 20060123
  Receipt Date: 20060109
  Transmission Date: 20060701
  Serious: Yes (Other)
  Sender: FDA-Public Use
  Company Number: 2005163548

PATIENT
  Age: 2 Year
  Sex: Male
  Weight: 11.3399 kg

DRUGS (2)
  1. CHILDREN'S SUDAFED NASAL DECONGESTANT (PSEUDOEPHEDRINE) [Suspect]
     Indication: EAR INFECTION
     Dosage: 1 TABLET ONCE, ORAL
     Route: 048
     Dates: start: 20051202, end: 20051202
  2. PSEUDOEPHEDRINE HCL [Suspect]
     Dosage: 1 TABLET OF 30 MG, TRANSMAMMARY
     Route: 063
     Dates: start: 20051201, end: 20051201

REACTIONS (2)
  - ANAPHYLACTIC SHOCK [None]
  - DRUG EXPOSURE VIA BREAST MILK [None]
